FAERS Safety Report 13271872 (Version 1)
Quarter: 2017Q1

REPORT INFORMATION
  Report Type: Spontaneous
  Country: IT (occurrence: IT)
  Receive Date: 20170227
  Receipt Date: 20170227
  Transmission Date: 20170428
  Serious: Yes (Hospitalization)
  Sender: FDA-Public Use
  Company Number: IT-MERCK KGAA-1063608

PATIENT
  Sex: Female

DRUGS (5)
  1. NOVOTHYROX [Suspect]
     Active Substance: LEVOTHYROXINE SODIUM
     Indication: PRODUCT USED FOR UNKNOWN INDICATION
  2. INDERAL [Suspect]
     Active Substance: PROPRANOLOL HYDROCHLORIDE
  3. LASITONE(OSYROL-LASIX) [Suspect]
     Active Substance: FUROSEMIDE\SPIRONOLACTONE
  4. XARELTO [Suspect]
     Active Substance: RIVAROXABAN
  5. CORDARONE [Suspect]
     Active Substance: AMIODARONE HYDROCHLORIDE

REACTIONS (1)
  - Epistaxis [Unknown]
